FAERS Safety Report 15952297 (Version 1)
Quarter: 2019Q1

REPORT INFORMATION
  Report Type: Spontaneous
  Country: US (occurrence: US)
  Receive Date: 20190211
  Receipt Date: 20190211
  Transmission Date: 20190417
  Serious: Yes (Hospitalization)
  Sender: FDA-Public Use
  Company Number: US-PFIZER INC-2018409299

PATIENT
  Age: 74 Year

DRUGS (1)
  1. LYRICA [Suspect]
     Active Substance: PREGABALIN
     Indication: POST LAMINECTOMY SYNDROME
     Dosage: 75 MG, 2X/DAY(1 CAPSULE TWICE A DAY 30 DAYS)
     Route: 048

REACTIONS (2)
  - Oxygen saturation decreased [Unknown]
  - Gastrooesophageal reflux disease [Unknown]
